FAERS Safety Report 16484390 (Version 2)
Quarter: 2019Q4

REPORT INFORMATION
  Report Type: Spontaneous
  Country: FR (occurrence: FR)
  Receive Date: 20190627
  Receipt Date: 20191107
  Transmission Date: 20200122
  Serious: Yes (Death)
  Sender: FDA-Public Use
  Company Number: FR-MYLANLABS-2019M1060063

PATIENT
  Age: 33 Year
  Sex: Female
  Weight: 52 kg

DRUGS (8)
  1. MYCOPHENOLATE MOFETIL. [Suspect]
     Active Substance: MYCOPHENOLATE MOFETIL
     Indication: PROPHYLAXIS AGAINST GRAFT VERSUS HOST DISEASE
     Dosage: 2250 MILLIGRAM, QD
     Route: 048
     Dates: start: 20181205, end: 20181212
  2. TOPALGIC                           /00599202/ [Suspect]
     Active Substance: TRAMADOL HYDROCHLORIDE
     Indication: STOMATITIS
     Dosage: 300 MILLIGRAM, QD
     Route: 042
     Dates: start: 20181204, end: 20181212
  3. ALPRAZOLAM MYLAN 0.25 MG, COMPRIM? S?CABLE [Suspect]
     Active Substance: ALPRAZOLAM
     Indication: ANXIETY
     Dosage: 0.25 MILLIGRAM, TOTAL
     Route: 048
     Dates: start: 20181211, end: 20181211
  4. PIPERACILLIN AND TAZOBACTAM [Suspect]
     Active Substance: PIPERACILLIN SODIUM\TAZOBACTAM SODIUM
     Indication: FEBRILE NEUTROPENIA
     Dosage: 3 DOSAGE FORM, QD
     Route: 042
     Dates: start: 20181201, end: 20181212
  5. CANCIDAS [Suspect]
     Active Substance: CASPOFUNGIN ACETATE
     Indication: ANTIFUNGAL PROPHYLAXIS
     Dosage: 50 MILLIGRAM, QD
     Route: 042
     Dates: start: 20181210, end: 20181213
  6. ACUPAN [Suspect]
     Active Substance: NEFOPAM HYDROCHLORIDE
     Indication: STOMATITIS
     Dosage: 80 MILLIGRAM, QD
     Route: 042
     Dates: start: 20181201, end: 20181212
  7. MK-8228 ATU [Suspect]
     Active Substance: LETERMOVIR
     Indication: ANTIVIRAL PROPHYLAXIS
     Dosage: 240 MILLIGRAM, QD
     Route: 048
     Dates: start: 20181206, end: 20181213
  8. PRIMPERAN [Suspect]
     Active Substance: METOCLOPRAMIDE HYDROCHLORIDE
     Indication: PROPHYLAXIS OF NAUSEA AND VOMITING
     Dosage: 30 MILLIGRAM, QD
     Route: 042
     Dates: start: 20181123, end: 20181212

REACTIONS (1)
  - Encephalopathy [Fatal]

NARRATIVE: CASE EVENT DATE: 20181212
